FAERS Safety Report 9532117 (Version 1)
Quarter: 2013Q3

REPORT INFORMATION
  Report Type: Spontaneous
  Country: FR (occurrence: FR)
  Receive Date: 20130918
  Receipt Date: 20130918
  Transmission Date: 20140515
  Serious: Yes (Other)
  Sender: FDA-Public Use
  Company Number: FR-PFIZER INC-2013261879

PATIENT
  Age: 78 Year
  Sex: Male

DRUGS (2)
  1. TYGACIL [Suspect]
     Indication: PROSTATITIS
     Dosage: UNK
     Route: 041
     Dates: start: 20121221
  2. MERONEM [Concomitant]
     Dosage: 6 G, DAIOY
     Dates: start: 20121203

REACTIONS (3)
  - Malaise [Recovered/Resolved]
  - Hypotension [Recovered/Resolved]
  - Bradycardia [Recovered/Resolved]
